FAERS Safety Report 4604686-8 (Version None)
Quarter: 2005Q2

REPORT INFORMATION
  Report Type: 
  Country: None (occurrence: None)
  Receive Date: 20050224
  Receipt Date: 20041118
  Transmission Date: 20051028
  Serious: No
  Sender: FDA-Public Use
  Company Number: SU-2004-002857

PATIENT
  Age: 49 Year
  Sex: Female

DRUGS (3)
  1. BENICAR [Suspect]
     Indication: HYPERTENSION
     Dosage: 20 MG QD PO
     Route: 048
     Dates: start: 20041001
  2. ORTHO-CEPT [Concomitant]
  3. SYNTHROID [Concomitant]

REACTIONS (1)
  - MUSCLE TWITCHING [None]
